FAERS Safety Report 6315483-X (Version None)
Quarter: 2009Q3

REPORT INFORMATION
  Report Type: 
  Country: None (occurrence: None)
  Receive Date: 20090819
  Receipt Date: 20090805
  Transmission Date: 20100115
  Serious: Yes (Other)
  Sender: FDA-Public Use
  Company Number: DE-MYLANLABS-2009S1014013

PATIENT
  Age: 72 Year
  Sex: Female

DRUGS (13)
  1. CARBADURA [Suspect]
     Indication: ACCIDENTAL EXPOSURE
     Route: 048
  2. ALLOPURINOL [Suspect]
     Indication: ACCIDENTAL EXPOSURE
     Route: 048
  3. ATACAND PROTECT [Suspect]
     Indication: ACCIDENTAL EXPOSURE
     Route: 048
  4. DIGIMERCK MINOR [Suspect]
     Indication: ACCIDENTAL EXPOSURE
     Route: 048
  5. MARCUMAR [Suspect]
     Indication: DRUG USE FOR UNKNOWN INDICATION
     Route: 048
  6. SPIRONOLACTONE [Suspect]
     Indication: DRUG USE FOR UNKNOWN INDICATION
     Route: 048
  7. VENLAFAXINE HCL [Suspect]
     Indication: ACCIDENTAL EXPOSURE
     Route: 048
  8. TAMOXIFEN CITRATE [Suspect]
     Indication: ACCIDENTAL EXPOSURE
     Route: 048
  9. HYDROCHLOROTHIAZIDE [Suspect]
     Indication: ACCIDENTAL EXPOSURE
     Route: 048
  10. AMLODIPINE [Suspect]
     Indication: ACCIDENTAL EXPOSURE
     Route: 048
  11. CITALOPRAM HYDROBROMIDE [Suspect]
     Indication: ACCIDENTAL EXPOSURE
     Route: 048
  12. SIMVASTATIN [Suspect]
     Indication: ACCIDENTAL EXPOSURE
     Route: 048
  13. TORASEMIDE [Suspect]
     Indication: ACCIDENTAL EXPOSURE
     Route: 048

REACTIONS (2)
  - ACCIDENTAL OVERDOSE [None]
  - VERTIGO [None]
